FAERS Safety Report 5013355-4 (Version None)
Quarter: 2006Q2

REPORT INFORMATION
  Report Type: 
  Country: None (occurrence: None)
  Receive Date: 20060530
  Receipt Date: 20060419
  Transmission Date: 20061013
  Serious: No
  Sender: FDA-Public Use
  Company Number: US-GLAXOSMITHKLINE-A0602444A

PATIENT
  Age: 34 Year
  Sex: Female
  Weight: 100.5 kg

DRUGS (3)
  1. WELLBUTRIN [Suspect]
     Indication: DEPRESSION
     Dosage: 150MG TWICE PER DAY
     Route: 048
     Dates: start: 20060322
  2. ZOLOFT [Concomitant]
  3. DESOGEN [Concomitant]

REACTIONS (1)
  - DYSGEUSIA [None]
